FAERS Safety Report 4788227-0 (Version None)
Quarter: 2005Q4

REPORT INFORMATION
  Report Type: 
  Country: None (occurrence: None)
  Receive Date: 20051004
  Receipt Date: 20051004
  Transmission Date: 20060501
  Serious: Yes (Hospitalization)
  Sender: FDA-Public Use
  Company Number: None

PATIENT
  Sex: Male
  Weight: 76.07 kg

DRUGS (1)
  1. OLANZAPINE [Suspect]
     Dosage: 5 MG   BID   PO
     Route: 048
     Dates: start: 20050825, end: 20050827

REACTIONS (1)
  - BLOOD CREATINE PHOSPHOKINASE INCREASED [None]
